FAERS Safety Report 5482588-5 (Version None)
Quarter: 2007Q4

REPORT INFORMATION
  Report Type: 
  Country: None (occurrence: None)
  Receive Date: 20071011
  Receipt Date: 20070724
  Transmission Date: 20080405
  Serious: No
  Sender: FDA-Public Use
  Company Number: A0666048A

PATIENT
  Age: 66 Year
  Sex: Female

DRUGS (10)
  1. TYKERB [Suspect]
     Indication: BREAST CANCER
     Dosage: 1250TAB IN THE MORNING
     Route: 048
     Dates: start: 20070519, end: 20070720
  2. XELODA [Concomitant]
  3. ATENOLOL [Concomitant]
  4. ZOCOR [Concomitant]
  5. PROZAC [Concomitant]
  6. CELEBREX [Concomitant]
  7. HYDROCHLOROTHIAZIDE [Concomitant]
  8. POTASSIUM CL [Concomitant]
  9. VITAMIN B6 [Concomitant]
  10. MAGNESIUM SULFATE [Concomitant]

REACTIONS (1)
  - DRUG INEFFECTIVE [None]
